FAERS Safety Report 12659039 (Version 2)
Quarter: 2016Q3

REPORT INFORMATION
  Report Type: Spontaneous
  Country: US (occurrence: US)
  Receive Date: 20160816
  Receipt Date: 20160907
  Transmission Date: 20161109
  Serious: No
  Sender: FDA-Public Use
  Company Number: US-009507513-1608USA007086

PATIENT
  Age: 24 Year
  Sex: Female

DRUGS (2)
  1. LORATADINE. [Concomitant]
     Active Substance: LORATADINE
     Route: 048
  2. NEXPLANON [Suspect]
     Active Substance: ETONOGESTREL
     Dosage: FREQUENCY: ONCE
     Route: 059
     Dates: start: 20160217

REACTIONS (1)
  - Urticaria [Recovering/Resolving]

NARRATIVE: CASE EVENT DATE: 201607
